FAERS Safety Report 17125139 (Version 2)
Quarter: 2020Q1

REPORT INFORMATION
  Report Type: Not Available
  Country: US (occurrence: US)
  Receive Date: 20191206
  Receipt Date: 20200107
  Transmission Date: 20200409
  Serious: Yes (Hospitalization)
  Sender: FDA-Public Use
  Company Number: US-NEUROCRINE BIOSCIENCES INC.-2019NBI03624

PATIENT
  Age: 63 Year
  Sex: Male

DRUGS (2)
  1. INGREZZA [Suspect]
     Active Substance: VALBENAZINE
     Route: 048
     Dates: start: 20190215
  2. INGREZZA [Suspect]
     Active Substance: VALBENAZINE
     Indication: TARDIVE DYSKINESIA
     Route: 048
     Dates: start: 20190207, end: 20190214

REACTIONS (5)
  - Diabetic neuropathy [Unknown]
  - Fall [Unknown]
  - Cognitive disorder [Unknown]
  - Muscular weakness [Unknown]
  - Spinal fracture [Unknown]

NARRATIVE: CASE EVENT DATE: 201911
